FAERS Safety Report 9128194 (Version 1)
Quarter: 2013Q1

REPORT INFORMATION
  Report Type: Spontaneous
  Country: JP (occurrence: JP)
  Receive Date: 20130125
  Receipt Date: 20130125
  Transmission Date: 20140127
  Serious: Yes (Other)
  Sender: FDA-Public Use
  Company Number: JP-SANOFI-AVENTIS-2013SA006244

PATIENT
  Sex: Male

DRUGS (2)
  1. MYSLEE [Suspect]
     Indication: INSOMNIA
     Route: 048
  2. INSULIN [Concomitant]

REACTIONS (4)
  - Facial bones fracture [Unknown]
  - Subarachnoid haemorrhage [Unknown]
  - Fall [Unknown]
  - Prescribed overdose [Unknown]
